FAERS Safety Report 12933978 (Version 1)
Quarter: 2016Q4

REPORT INFORMATION
  Report Type: Spontaneous
  Country: CN (occurrence: CN)
  Receive Date: 20161111
  Receipt Date: 20161111
  Transmission Date: 20170207
  Serious: Yes (Other)
  Sender: FDA-Public Use
  Company Number: ALCN2016CN007621

PATIENT
  Age: 60 Year
  Sex: Male

DRUGS (1)
  1. TOBRADEX [Suspect]
     Active Substance: DEXAMETHASONE\TOBRAMYCIN
     Indication: POSTOPERATIVE CARE
     Dosage: UNK
     Route: 047
     Dates: start: 201606, end: 201607

REACTIONS (3)
  - Corneal opacity [Not Recovered/Not Resolved]
  - Corneal oedema [Not Recovered/Not Resolved]
  - Pseudophakic bullous keratopathy [Not Recovered/Not Resolved]

NARRATIVE: CASE EVENT DATE: 2016
